FAERS Safety Report 15907230 (Version 5)
Quarter: 2019Q3

REPORT INFORMATION
  Report Type: Spontaneous
  Country: US (occurrence: US)
  Receive Date: 20190204
  Receipt Date: 20190822
  Transmission Date: 20191004
  Serious: Yes (Other)
  Sender: FDA-Public Use
  Company Number: US-PFIZER INC-2019048538

PATIENT
  Sex: Male
  Weight: 77.98 kg

DRUGS (1)
  1. LEVOFLOXACIN. [Suspect]
     Active Substance: LEVOFLOXACIN
     Dosage: UNK

REACTIONS (4)
  - Angioedema [Unknown]
  - Drug hypersensitivity [Unknown]
  - Drug eruption [Unknown]
  - Urticaria [Unknown]
